FAERS Safety Report 6440813-8 (Version None)
Quarter: 2009Q4

REPORT INFORMATION
  Report Type: 
  Country: None (occurrence: None)
  Receive Date: 20091116
  Receipt Date: 20091109
  Transmission Date: 20100525
  Serious: Yes (Hospitalization)
  Sender: FDA-Public Use
  Company Number: GB-JNJFOC-20090608137

PATIENT
  Sex: Male
  Weight: 89.85 kg

DRUGS (2)
  1. RISPERDAL [Suspect]
     Indication: PSYCHOTIC DISORDER
     Route: 048
     Dates: start: 20081223, end: 20090401
  2. TRAZODONE HCL [Concomitant]
     Route: 065

REACTIONS (3)
  - BLOOD PROLACTIN INCREASED [None]
  - ERECTILE DYSFUNCTION [None]
  - HOSPITALISATION [None]
